FAERS Safety Report 14842292 (Version 2)
Quarter: 2018Q2

REPORT INFORMATION
  Report Type: Report from Study
  Country: CA (occurrence: CA)
  Receive Date: 20180503
  Receipt Date: 20180626
  Transmission Date: 20180711
  Serious: Yes (Hospitalization, Other)
  Sender: FDA-Public Use
  Company Number: CA-JNJFOC-20180412123

PATIENT
  Age: 74 Year
  Sex: Male

DRUGS (1)
  1. TREMFYA [Suspect]
     Active Substance: GUSELKUMAB
     Indication: PSORIASIS
     Dosage: STRENGTH = 100 MG
     Route: 058
     Dates: start: 20180309, end: 20180406

REACTIONS (6)
  - Hypersensitivity [Recovering/Resolving]
  - Dysarthria [Not Recovered/Not Resolved]
  - Dehydration [Unknown]
  - Sinusitis [Unknown]
  - Pruritus [Not Recovered/Not Resolved]
  - Blood sodium decreased [Recovering/Resolving]

NARRATIVE: CASE EVENT DATE: 20180413
